FAERS Safety Report 6340914-9 (Version None)
Quarter: 2009Q3

REPORT INFORMATION
  Report Type: 
  Country: None (occurrence: None)
  Receive Date: 20090904
  Receipt Date: 20090831
  Transmission Date: 20100115
  Serious: Yes (Hospitalization)
  Sender: FDA-Public Use
  Company Number: AU-JNJCH-2009023609

PATIENT
  Age: 22 Month
  Sex: Female

DRUGS (1)
  1. DYMADON FOR KIDS COLOUR FREE [Suspect]
     Indication: ACCIDENTAL EXPOSURE
     Dosage: TEXT:100 ML ONCE
     Route: 048
     Dates: start: 20090827, end: 20090827

REACTIONS (2)
  - ACCIDENTAL DRUG INTAKE BY CHILD [None]
  - OVERDOSE [None]
